FAERS Safety Report 15785138 (Version 13)
Quarter: 2021Q3

REPORT INFORMATION
  Report Type: Spontaneous
  Country: US (occurrence: US)
  Receive Date: 20190103
  Receipt Date: 20210726
  Transmission Date: 20211014
  Serious: Yes (Other)
  Sender: FDA-Public Use
  Company Number: US-PFIZER INC-2019001430

PATIENT
  Age: 49 Year
  Sex: Female

DRUGS (6)
  1. IBRANCE [Suspect]
     Active Substance: PALBOCICLIB
     Dosage: 75 MG, CYCLIC (DAILY FOR 2 WEEKS ON AND 1 WEEK OFF)
     Route: 048
     Dates: start: 20181207
  2. IBRANCE [Suspect]
     Active Substance: PALBOCICLIB
     Indication: BREAST CANCER METASTATIC
     Dosage: 125 MG, CYCLIC (DAILY FOR 3 WEEKS ON)
     Route: 048
     Dates: start: 20181206, end: 20181225
  3. LETROZOLE. [Concomitant]
     Active Substance: LETROZOLE
     Dosage: UNK
  4. XGEVA [Concomitant]
     Active Substance: DENOSUMAB
     Dosage: UNK
  5. IBRANCE [Suspect]
     Active Substance: PALBOCICLIB
     Dosage: 100 MG, CYCLIC (DAILY FOR 3 WEEKS ON AND 1 WEEK OFF)
     Route: 048
     Dates: start: 20181227, end: 20190109
  6. IBRANCE [Suspect]
     Active Substance: PALBOCICLIB
     Dosage: 75 MG, CYCLIC (DAILY FOR 2 WEEKS ON AND 1 WEEK OFF)
     Route: 048
     Dates: start: 20190114

REACTIONS (8)
  - Arthralgia [Unknown]
  - Back pain [Unknown]
  - Fatigue [Not Recovered/Not Resolved]
  - Pain [Unknown]
  - Joint stiffness [Unknown]
  - White blood cell count decreased [Recovering/Resolving]
  - Breast pain [Unknown]
  - Neutropenia [Unknown]

NARRATIVE: CASE EVENT DATE: 20181214
